FAERS Safety Report 25670621 (Version 1)
Quarter: 2025Q3

REPORT INFORMATION
  Report Type: Spontaneous
  Country: US (occurrence: US)
  Receive Date: 20250812
  Receipt Date: 20250812
  Transmission Date: 20251021
  Serious: No
  Sender: VERTEX
  Company Number: US-VERTEX PHARMACEUTICALS-2025-006220

PATIENT
  Sex: Female

DRUGS (1)
  1. JOURNAVX [Suspect]
     Active Substance: SUZETRIGINE
     Indication: Neuralgia
     Route: 048
     Dates: start: 20250403, end: 20250410

REACTIONS (8)
  - Headache [Unknown]
  - Palpitations [Unknown]
  - Skin burning sensation [Unknown]
  - Myalgia [Unknown]
  - Dizziness [Unknown]
  - Nausea [Unknown]
  - Influenza like illness [Unknown]
  - Off label use [Unknown]

NARRATIVE: CASE EVENT DATE: 20250101
